FAERS Safety Report 10192468 (Version 2)
Quarter: 2014Q2

REPORT INFORMATION
  Report Type: Spontaneous
  Country: DE (occurrence: DE)
  Receive Date: 20140523
  Receipt Date: 20140615
  Transmission Date: 20141212
  Serious: Yes (Other)
  Sender: FDA-Public Use
  Company Number: DE-BRISTOL-MYERS SQUIBB COMPANY-20788410

PATIENT
  Age: 52 Year
  Sex: Female

DRUGS (3)
  1. SPRYCEL (CML) TABS 100 MG [Suspect]
     Indication: CHRONIC MYELOID LEUKAEMIA
     Dosage: ONGOING
     Route: 048
  2. BISOPROLOL [Concomitant]
  3. OMEPRAZOLE [Concomitant]

REACTIONS (1)
  - Gallbladder disorder [Recovered/Resolved]
